FAERS Safety Report 25109537 (Version 1)
Quarter: 2025Q1

REPORT INFORMATION
  Report Type: Spontaneous
  Country: US (occurrence: US)
  Receive Date: 20250323
  Receipt Date: 20250323
  Transmission Date: 20250409
  Serious: No
  Sender: SANOFI AVENTIS
  Company Number: US-SA-2025SA083720

PATIENT
  Sex: Female

DRUGS (1)
  1. OLIPUDASE ALFA-RPCP [Suspect]
     Active Substance: OLIPUDASE ALFA-RPCP
     Route: 065

REACTIONS (1)
  - Speech disorder developmental [Unknown]
